FAERS Safety Report 22039485 (Version 2)
Quarter: 2023Q2

REPORT INFORMATION
  Report Type: Spontaneous
  Country: US (occurrence: US)
  Receive Date: 20230227
  Receipt Date: 20230421
  Transmission Date: 20230721
  Serious: No
  Sender: FDA-Public Use
  Company Number: US-VIIV HEALTHCARE LIMITED-US2023AMR030657

PATIENT
  Age: 60 Year
  Sex: Male
  Weight: 119.27 kg

DRUGS (2)
  1. TIVICAY [Suspect]
     Active Substance: DOLUTEGRAVIR SODIUM
     Indication: Product used for unknown indication
     Dosage: 50 MG, BID
     Route: 048
     Dates: start: 20230125, end: 20230130
  2. RUKOBIA [Suspect]
     Active Substance: FOSTEMSAVIR TROMETHAMINE
     Indication: Product used for unknown indication
     Dosage: 600 MG, BID
     Route: 048
     Dates: start: 20230125, end: 20230130

REACTIONS (5)
  - Insomnia [Recovering/Resolving]
  - Anxiety [Recovering/Resolving]
  - Depression [Recovering/Resolving]
  - Post-traumatic stress disorder [Recovering/Resolving]
  - Condition aggravated [Recovering/Resolving]
